FAERS Safety Report 6550991-8 (Version None)
Quarter: 2010Q1

REPORT INFORMATION
  Report Type: 
  Country: None (occurrence: None)
  Receive Date: 20100125
  Receipt Date: 20100112
  Transmission Date: 20100710
  Serious: Yes (Other)
  Sender: FDA-Public Use
  Company Number: US-PFIZER INC-2010000290

PATIENT
  Sex: Male
  Weight: 65.8 kg

DRUGS (3)
  1. XANAX [Suspect]
     Dosage: UNK
     Dates: start: 20090101
  2. LYRICA [Suspect]
     Indication: NEURALGIA
     Dosage: 50 MG, 2X/DAY
     Dates: start: 20091120, end: 20091226
  3. OXYCODONE [Concomitant]
     Dosage: 10 MG, UNK
     Dates: start: 20090101

REACTIONS (4)
  - BODY HEIGHT DECREASED [None]
  - NEURALGIA [None]
  - OEDEMA PERIPHERAL [None]
  - SURGERY [None]
